FAERS Safety Report 5093011-7 (Version None)
Quarter: 2006Q3

REPORT INFORMATION
  Report Type: 
  Country: None (occurrence: None)
  Receive Date: 20060830
  Receipt Date: 20060816
  Transmission Date: 20061208
  Serious: Yes (Death)
  Sender: FDA-Public Use
  Company Number: FR-BRISTOL-MYERS SQUIBB COMPANY-13480504

PATIENT
  Age: 68 Year
  Sex: Male
  Weight: 90 kg

DRUGS (14)
  1. ELISOR TABS 20 MG [Suspect]
     Route: 048
  2. DIFFU-K [Suspect]
     Route: 048
  3. TRIATEC [Suspect]
     Route: 048
  4. VFEND [Suspect]
     Route: 048
  5. TARCEVA [Suspect]
     Route: 048
  6. GLUCOR [Suspect]
     Route: 048
  7. ISOPTIN [Concomitant]
  8. ALDACTONE [Concomitant]
  9. LASILIX [Concomitant]
  10. ALLOPURINOL [Concomitant]
  11. ADANCOR [Concomitant]
  12. NITRODERM PATCH [Concomitant]
  13. BRICANYL [Concomitant]
  14. ATROVENT [Concomitant]

REACTIONS (3)
  - DEATH [None]
  - DIARRHOEA [None]
  - PAROXYSMAL ARRHYTHMIA [None]
